FAERS Safety Report 9798691 (Version 1)
Quarter: 2014Q1

REPORT INFORMATION
  Report Type: Spontaneous
  Country: US (occurrence: US)
  Receive Date: 20140106
  Receipt Date: 20140106
  Transmission Date: 20141002
  Serious: No
  Sender: FDA-Public Use
  Company Number: US-GILEAD-2010-0029794

PATIENT
  Age: 59 Year
  Sex: Female

DRUGS (11)
  1. LETAIRIS [Suspect]
     Indication: PULMONARY ARTERIAL HYPERTENSION
     Route: 048
     Dates: start: 20100423
  2. LETAIRIS [Suspect]
     Route: 048
  3. SINGULAIR [Concomitant]
  4. FUROSEMIDE [Concomitant]
  5. NASACORT AQ [Concomitant]
  6. AVAPRO [Concomitant]
  7. KETOCONAZOLE [Concomitant]
  8. PROMETHAZINE [Concomitant]
  9. PREVACID [Concomitant]
  10. PROAIR HFA [Concomitant]
  11. ASPIRIN [Concomitant]

REACTIONS (2)
  - Local swelling [Unknown]
  - Abdominal distension [Unknown]
